FAERS Safety Report 7433295-0 (Version None)
Quarter: 2011Q2

REPORT INFORMATION
  Report Type: 
  Country: None (occurrence: None)
  Receive Date: 20110422
  Receipt Date: 20110412
  Transmission Date: 20111010
  Serious: Yes (Hospitalization)
  Sender: FDA-Public Use
  Company Number: US-ELI_LILLY_AND_COMPANY-US201011007296

PATIENT
  Sex: Female

DRUGS (11)
  1. FORTEO [Suspect]
     Dosage: 20 UG, QD
  2. CRANBERRY [Concomitant]
  3. VITAMIN K TAB [Concomitant]
     Dosage: UNK, 3/W
  4. C-VITAMIN [Concomitant]
  5. FISH OIL [Concomitant]
  6. FORTEO [Suspect]
     Indication: OSTEOPOROSIS
     Dosage: UNK, UNKNOWN
     Dates: start: 20101118
  7. FERROUS SULFATE TAB [Concomitant]
  8. POTASSIUM [Concomitant]
  9. VITAMIN D [Concomitant]
     Dosage: UNK
  10. CALCIUM [Concomitant]
  11. MAGNESIUM [Concomitant]

REACTIONS (7)
  - FEAR [None]
  - SKIN INJURY [None]
  - VOMITING [None]
  - FALL [None]
  - URINARY TRACT INFECTION [None]
  - ILL-DEFINED DISORDER [None]
  - HEART RATE IRREGULAR [None]
